FAERS Safety Report 8238878-6 (Version None)
Quarter: 2012Q1

REPORT INFORMATION
  Report Type: 
  Country: None (occurrence: None)
  Receive Date: 20120327
  Receipt Date: 20120322
  Transmission Date: 20120608
  Serious: Yes (Hospitalization, Other)
  Sender: FDA-Public Use
  Company Number: VE-PFIZER INC-2012069827

PATIENT
  Age: 67 Year
  Sex: Female

DRUGS (4)
  1. PLAVIX [Concomitant]
     Indication: ANTIPLATELET THERAPY
     Dosage: 75 MG, 1X/DAY
     Route: 048
  2. LIPITOR [Suspect]
     Indication: HYPERCHOLESTEROLAEMIA
     Dosage: 40 MG, 1X/DAY
     Route: 048
     Dates: start: 20080101
  3. CLONAZEPAM [Concomitant]
     Indication: SLEEP DISORDER
     Dosage: 2 MG, 1X/DAY
     Route: 048
     Dates: start: 20120201
  4. AMLODIPINE/VALSARTAN [Concomitant]
     Indication: HYPERTENSION
     Dosage: [AMLODIPINE 5 MG / VALSARTAN 320 MG], ONCE DAILY
     Route: 048

REACTIONS (7)
  - PAIN IN EXTREMITY [None]
  - DISCOMFORT [None]
  - HYPERTENSIVE CRISIS [None]
  - HAEMORRHAGE [None]
  - PIGMENTATION DISORDER [None]
  - CHEST DISCOMFORT [None]
  - PAIN [None]
